FAERS Safety Report 18665012 (Version 1)
Quarter: 2020Q4

REPORT INFORMATION
  Report Type: Spontaneous
  Country: DE (occurrence: DE)
  Receive Date: 20201225
  Receipt Date: 20201225
  Transmission Date: 20210114
  Serious: Yes (Hospitalization, Other)
  Sender: FDA-Public Use
  Company Number: DE-TEVA-2020-DE-1860877

PATIENT
  Age: 40 Year
  Sex: Male
  Weight: 110 kg

DRUGS (3)
  1. SPIRIVA [Concomitant]
     Active Substance: TIOTROPIUM BROMIDE MONOHYDRATE
  2. FOSTER [Concomitant]
     Active Substance: BECLOMETHASONE\FORMOTEROL
  3. AMOXICILLIN. [Suspect]
     Active Substance: AMOXICILLIN
     Dosage: BEGINNING ON 15102020

REACTIONS (4)
  - Swollen tongue [Recovered/Resolved]
  - Lip swelling [Recovered/Resolved]
  - Anaphylactic reaction [Recovered/Resolved]
  - Rash [Recovered/Resolved]
